FAERS Safety Report 17631446 (Version 1)
Quarter: 2020Q2

REPORT INFORMATION
  Report Type: Spontaneous
  Country: GR (occurrence: GR)
  Receive Date: 20200406
  Receipt Date: 20200406
  Transmission Date: 20200713
  Serious: Yes (Other)
  Sender: FDA-Public Use
  Company Number: GR-MYLANLABS-2020M1034331

PATIENT
  Sex: Male

DRUGS (1)
  1. ARIXTRA [Suspect]
     Active Substance: FONDAPARINUX SODIUM
     Indication: THROMBOPHLEBITIS
     Dosage: 1 DOSAGE FORM, QD (7.5/0.6 MG/ML)
     Route: 058
     Dates: start: 201911

REACTIONS (1)
  - Impaired healing [Not Recovered/Not Resolved]
